FAERS Safety Report 9217980 (Version 4)
Quarter: 2013Q4

REPORT INFORMATION
  Report Type: Report from Study
  Country: BR (occurrence: BR)
  Receive Date: 20130408
  Receipt Date: 20131126
  Transmission Date: 20140711
  Serious: Yes (Hospitalization, Other)
  Sender: FDA-Public Use
  Company Number: BR-ROCHE-1071923

PATIENT
  Age: 56 Year
  Sex: Female
  Weight: 90 kg

DRUGS (11)
  1. MABTHERA [Suspect]
     Indication: RHEUMATOID ARTHRITIS
     Route: 065
     Dates: start: 201009
  2. MABTHERA [Suspect]
     Route: 042
     Dates: start: 20090901
  3. ACTEMRA [Suspect]
     Indication: RHEUMATOID ARTHRITIS
     Route: 042
  4. ACTEMRA [Suspect]
     Route: 042
     Dates: start: 20130118
  5. CALCORT [Suspect]
     Indication: RHEUMATOID ARTHRITIS
     Route: 048
     Dates: start: 20130626
  6. CALCORT [Suspect]
     Route: 048
  7. METHOTREXATE [Suspect]
     Indication: PRODUCT USED FOR UNKNOWN INDICATION
     Route: 065
  8. LEFLUNOMIDE [Suspect]
     Indication: PRODUCT USED FOR UNKNOWN INDICATION
     Route: 065
  9. LANSOPRAZOLE [Concomitant]
     Indication: PROPHYLAXIS
     Route: 048
  10. FLOTAC [Concomitant]
     Indication: PREMEDICATION
     Route: 048
  11. PARACETAMOL [Concomitant]
     Indication: PREMEDICATION
     Dosage: 3 TABLETS
     Route: 065

REACTIONS (22)
  - Erythema [Recovered/Resolved]
  - Medical device removal [Recovered/Resolved]
  - Device dislocation [Recovered/Resolved with Sequelae]
  - Throat irritation [Recovered/Resolved]
  - Allergy to chemicals [Unknown]
  - Joint injury [Not Recovered/Not Resolved]
  - Cellulitis [Recovered/Resolved]
  - Abscess [Unknown]
  - Infection [Unknown]
  - Pain [Unknown]
  - Gait disturbance [Unknown]
  - Condition aggravated [Unknown]
  - Chills [Recovered/Resolved]
  - Pain [Recovered/Resolved]
  - Skin disorder [Unknown]
  - Soft tissue haemorrhage [Unknown]
  - Nasopharyngitis [Unknown]
  - Skin discolouration [Recovered/Resolved]
  - Hypersensitivity [Recovered/Resolved]
  - Therapeutic response decreased [Unknown]
  - Gastrointestinal disorder [Recovered/Resolved]
  - Migraine [Recovered/Resolved]
